FAERS Safety Report 9392847 (Version 1)
Quarter: 2013Q3

REPORT INFORMATION
  Report Type: Report from Study
  Country: JP (occurrence: JP)
  Receive Date: 20130710
  Receipt Date: 20130710
  Transmission Date: 20140515
  Serious: Yes (Other)
  Sender: FDA-Public Use
  Company Number: JP-ROCHE-1247155

PATIENT
  Sex: Male

DRUGS (2)
  1. ALTEPLASE [Suspect]
     Indication: THROMBOTIC CEREBRAL INFARCTION
     Dosage: 24 MIU
     Route: 042
     Dates: start: 20100704, end: 20100714
  2. EDARAVONE [Suspect]
     Indication: THROMBOTIC CEREBRAL INFARCTION
     Dosage: AMPOULE 30MGX1
     Route: 041
     Dates: start: 20100704, end: 20100712

REACTIONS (1)
  - Renal impairment [Recovering/Resolving]
